FAERS Safety Report 9188588 (Version 2)
Quarter: 2012Q4

REPORT INFORMATION
  Report Type: 
  Country: US (occurrence: US)
  Receive Date: 20121212
  Receipt Date: 20121218
  Transmission Date: 20130627
  Serious: Yes (Other)
  Sender: FDA-Public Use
  Company Number: US-RB-047507-12

PATIENT
  Age: 89 Year
  Sex: Female

DRUGS (3)
  1. MUCINEX DM (GUAIFENESIN) [Suspect]
     Indication: NASOPHARYNGITIS
     Dosage: For 2 to 3 days took 1 tablet every 12 hours. Stopped for 2 days and started again on 05-DEC-2012.
     Route: 048
     Dates: start: 20121130
  2. MUCINEX DM (DEXTROMETHORPHAN HYDROBROMIDE) [Suspect]
  3. ROBITUSSIN DM [Suspect]
     Indication: NASOPHARYNGITIS
     Dosage: Took 2 teaspoons on 30-Nov-2012 and then on 06-DEC-2012
     Dates: start: 20121130

REACTIONS (1)
  - Haemoptysis [Recovered/Resolved]
